FAERS Safety Report 5466083-5 (Version None)
Quarter: 2007Q3

REPORT INFORMATION
  Report Type: 
  Country: None (occurrence: None)
  Receive Date: 20070919
  Receipt Date: 20070910
  Transmission Date: 20080115
  Serious: Yes (Other)
  Sender: FDA-Public Use
  Company Number: 2007-03052

PATIENT
  Age: 61 Year
  Sex: Female

DRUGS (3)
  1. VELCADE [Suspect]
     Indication: MULTIPLE MYELOMA
     Dosage: 1.30 MG/M2
     Route: 042
     Dates: start: 20070326, end: 20070526
  2. MELPHALAN                     (MELPHALAN) [Suspect]
     Indication: MULTIPLE MYELOMA
     Dosage: 9.00 MG/M2, ORAL
     Route: 048
     Dates: start: 20070326
  3. PREDNISONE TAB [Suspect]
     Indication: MULTIPLE MYELOMA
     Dosage: 60.00 MG/M2, ORAL
     Route: 048
     Dates: start: 20070326

REACTIONS (7)
  - DRUG TOXICITY [None]
  - DYSKINESIA [None]
  - EMOTIONAL DISORDER [None]
  - GAIT DISTURBANCE [None]
  - INSOMNIA [None]
  - PAIN IN EXTREMITY [None]
  - PARAESTHESIA [None]
